FAERS Safety Report 19195536 (Version 2)
Quarter: 2022Q2

REPORT INFORMATION
  Report Type: Other
  Country: DE (occurrence: DE)
  Receive Date: 20210429
  Receipt Date: 20220521
  Transmission Date: 20220721
  Serious: Yes (Death, Other)
  Sender: FDA-Public Use
  Company Number: None

PATIENT
  Age: 35 Year
  Sex: Female
  Weight: 80 kg

DRUGS (9)
  1. QUETIAPINE [Interacting]
     Active Substance: QUETIAPINE
     Indication: Acute psychosis
     Dosage: 300 MILLIGRAM, QD (0-0-0-1)
     Route: 048
     Dates: start: 2021
  2. METOPROLOL SUCCINATE [Interacting]
     Active Substance: METOPROLOL SUCCINATE
     Indication: Essential hypertension
     Dosage: 23.5 MILLIGRAM, QD (1-0-0-0)
     Route: 048
     Dates: start: 20140913
  3. METOPROLOL SUCCINATE [Interacting]
     Active Substance: METOPROLOL SUCCINATE
     Indication: Hypertensive crisis
  4. AMISULPRIDE [Interacting]
     Active Substance: AMISULPRIDE
     Indication: Anxiety
     Dosage: 100 MILLIGRAM, BID (1-0-1)
     Route: 048
     Dates: start: 20200731
  5. AMISULPRIDE [Interacting]
     Active Substance: AMISULPRIDE
     Indication: Restlessness
  6. AMISULPRIDE [Interacting]
     Active Substance: AMISULPRIDE
     Indication: Sleep disorder
  7. INDAPAMIDE\PERINDOPRIL ARGININE [Interacting]
     Active Substance: INDAPAMIDE\PERINDOPRIL ARGININE
     Indication: Essential hypertension
     Dosage: 5 MG / 1,25 MG 1-0-0-0
     Route: 048
     Dates: start: 20140913
  8. INDAPAMIDE\PERINDOPRIL ARGININE [Interacting]
     Active Substance: INDAPAMIDE\PERINDOPRIL ARGININE
     Indication: Hypertensive crisis
  9. PROMETHAZINE [Interacting]
     Active Substance: PROMETHAZINE HYDROCHLORIDE
     Indication: Acute psychosis
     Dosage: 25 MG 1 HOUR MAX 44X / 24 H 4 H
     Route: 048
     Dates: start: 20200731

REACTIONS (3)
  - Death [Fatal]
  - Multiple organ dysfunction syndrome [Fatal]
  - Drug interaction [Unknown]
